FAERS Safety Report 4340110-0 (Version None)
Quarter: 2004Q2

REPORT INFORMATION
  Report Type: 
  Country: None (occurrence: None)
  Receive Date: 20040415
  Receipt Date: 20040415
  Transmission Date: 20050107
  Serious: No
  Sender: FDA-Public Use
  Company Number: None

PATIENT
  Age: 63 Year
  Sex: Female

DRUGS (2)
  1. COPAXONE [Suspect]
     Indication: MULTIPLE SCLEROSIS
     Dosage: 20MG DAILY SUBCUTANEOUS
     Route: 058
     Dates: start: 20040107, end: 20040107
  2. COPAXONE [Suspect]
     Indication: MULTIPLE SCLEROSIS
     Dosage: 20MG DAILY SUBCUTANEOUS
     Route: 058
     Dates: start: 20040109, end: 20040109

REACTIONS (1)
  - PSYCHOTIC DISORDER [None]
